FAERS Safety Report 6656808-5 (Version None)
Quarter: 2010Q1

REPORT INFORMATION
  Report Type: 
  Country: None (occurrence: None)
  Receive Date: 20100325
  Receipt Date: 20100314
  Transmission Date: 20100710
  Serious: Yes (Hospitalization)
  Sender: FDA-Public Use
  Company Number: 2009AP005157

PATIENT
  Age: 46 Year
  Sex: Male

DRUGS (2)
  1. FLUTICASONE PROPIONATE [Suspect]
     Indication: NASAL CONGESTION
     Dosage: ;NAS
     Route: 045
  2. LEVETIRACETAM [Concomitant]

REACTIONS (2)
  - ANXIETY [None]
  - LOSS OF EMPLOYMENT [None]
